FAERS Safety Report 9024475 (Version 1)
Quarter: 2013Q1

REPORT INFORMATION
  Report Type: Spontaneous
  Country: JP (occurrence: JP)
  Receive Date: 20130121
  Receipt Date: 20130121
  Transmission Date: 20140127
  Serious: Yes (Hospitalization)
  Sender: FDA-Public Use
  Company Number: JP-JNJFOC-20120701087

PATIENT
  Age: 81 None
  Sex: Male
  Weight: 70 kg

DRUGS (8)
  1. XARELTO [Suspect]
     Indication: ATRIAL FIBRILLATION
     Route: 048
     Dates: start: 20120621, end: 20120701
  2. XARELTO [Suspect]
     Indication: CEREBROVASCULAR ACCIDENT PROPHYLAXIS
     Route: 048
     Dates: start: 20120621, end: 20120701
  3. BAYASPIRIN [Interacting]
     Indication: PERIPHERAL ARTERIAL OCCLUSIVE DISEASE
     Route: 048
     Dates: start: 20120621, end: 20120731
  4. BAYASPIRIN [Interacting]
     Indication: STENT PLACEMENT
     Route: 048
     Dates: start: 20120621, end: 20120731
  5. BAYASPIRIN [Interacting]
     Indication: ARTERIAL CATHETERISATION
     Route: 048
     Dates: start: 20120621, end: 20120731
  6. PLETAAL [Interacting]
     Indication: PERIPHERAL ARTERIAL OCCLUSIVE DISEASE
     Route: 048
     Dates: start: 20120626
  7. PLETAAL [Interacting]
     Indication: STENT PLACEMENT
     Route: 048
     Dates: start: 20120626
  8. PLETAAL [Interacting]
     Indication: ARTERIAL CATHETERISATION
     Route: 048
     Dates: start: 20120626

REACTIONS (3)
  - Vascular pseudoaneurysm [Recovered/Resolved]
  - Catheter site haemorrhage [Recovered/Resolved]
  - Drug interaction [Unknown]
